FAERS Safety Report 15110766 (Version 1)
Quarter: 2018Q2

REPORT INFORMATION
  Report Type: Spontaneous
  Country: US (occurrence: US)
  Receive Date: 20180612
  Receipt Date: 20180612
  Transmission Date: 20180711
  Serious: Yes (Disabling)
  Sender: FDA-Public Use
  Company Number: None

PATIENT
  Age: 72 Year
  Sex: Female
  Weight: 81.65 kg

DRUGS (1)
  1. LEVOFLOXACIN 500MG TAB CAMB [Suspect]
     Active Substance: LEVOFLOXACIN
     Indication: POST PROCEDURAL SEPSIS
     Route: 048
     Dates: start: 20170710, end: 20170716

REACTIONS (1)
  - Tendonitis [None]

NARRATIVE: CASE EVENT DATE: 20170717
